FAERS Safety Report 23696847 (Version 2)
Quarter: 2024Q2

REPORT INFORMATION
  Report Type: Report from Study
  Country: KR (occurrence: KR)
  Receive Date: 20240402
  Receipt Date: 20240517
  Transmission Date: 20240717
  Serious: Yes (Other)
  Sender: FDA-Public Use
  Company Number: KR-GLAXOSMITHKLINE-KR2024GSK038315

PATIENT

DRUGS (1)
  1. DOSTARLIMAB [Suspect]
     Active Substance: DOSTARLIMAB
     Indication: Endometrial neoplasm
     Dosage: UNK
     Route: 042
     Dates: start: 202307

REACTIONS (1)
  - Cutaneous sarcoidosis [Recovered/Resolved]

NARRATIVE: CASE EVENT DATE: 20240101
